FAERS Safety Report 7592822-3 (Version None)
Quarter: 2011Q3

REPORT INFORMATION
  Report Type: 
  Country: None (occurrence: None)
  Receive Date: 20110706
  Receipt Date: 20110628
  Transmission Date: 20111222
  Serious: Yes (Other)
  Sender: FDA-Public Use
  Company Number: US-SANOFI-AVENTIS-2011SA041169

PATIENT
  Age: 62 Year
  Sex: Female

DRUGS (2)
  1. LANTUS [Suspect]
     Dosage: AT 10 PM DAILY DOSE:65 UNIT(S)
     Route: 058
     Dates: start: 20050101
  2. HUMALOG [Concomitant]
     Dosage: PER SLIDING SCALE WITH MEALS

REACTIONS (8)
  - WEIGHT INCREASED [None]
  - BACK PAIN [None]
  - NAUSEA [None]
  - GALLBLADDER DISORDER [None]
  - ABDOMINAL DISTENSION [None]
  - ABDOMINAL PAIN [None]
  - LOCALISED OEDEMA [None]
  - MOBILITY DECREASED [None]
